FAERS Safety Report 21513271 (Version 2)
Quarter: 2022Q4

REPORT INFORMATION
  Report Type: Spontaneous
  Country: CH (occurrence: CH)
  Receive Date: 20221027
  Receipt Date: 20221113
  Transmission Date: 20230113
  Serious: Yes (Hospitalization, Other)
  Sender: FDA-Public Use
  Company Number: None

PATIENT
  Age: 75 Year
  Sex: Male

DRUGS (9)
  1. TAPENTADOL HYDROCHLORIDE [Suspect]
     Active Substance: TAPENTADOL HYDROCHLORIDE
     Indication: Product used for unknown indication
     Dosage: 350 MILLIGRAM, 1/DAY
     Route: 065
     Dates: end: 20210716
  2. TAPENTADOL HYDROCHLORIDE [Suspect]
     Active Substance: TAPENTADOL HYDROCHLORIDE
     Dosage: 250 MILLIGRAM, 1/DAY
     Route: 065
     Dates: start: 20210717, end: 20210718
  3. TAPENTADOL HYDROCHLORIDE [Suspect]
     Active Substance: TAPENTADOL HYDROCHLORIDE
     Dosage: 350 MILLIGRAM, 1/DAY
     Route: 065
     Dates: start: 20210719, end: 20210722
  4. TRAMADOL HYDROCHLORIDE [Suspect]
     Active Substance: TRAMADOL HYDROCHLORIDE
     Indication: Product used for unknown indication
     Dosage: UNK; THERAPT START DATE: 22/JUL/2022
     Route: 065
  5. MORPHINE [Suspect]
     Active Substance: MORPHINE
     Indication: Product used for unknown indication
     Dosage: 0.5 MILLIGRAM, 6/DAY
     Route: 042
  6. AMOXICILLIN\CLAVULANATE POTASSIUM [Suspect]
     Active Substance: AMOXICILLIN\CLAVULANATE POTASSIUM
     Indication: Pneumonia aspiration
     Dosage: 1.2 GRAM, 4/DAY THERAPY START DATE 16/JUL/2021
     Route: 042
     Dates: start: 202107, end: 20210721
  7. NALOXONE [Concomitant]
     Active Substance: NALOXONE
     Dosage: 0.6 MILLIGRAM
     Route: 042
  8. OXYGEN [Concomitant]
     Active Substance: OXYGEN
     Dosage: 6 LITRE
     Route: 065
  9. PREGABALIN [Concomitant]
     Active Substance: PREGABALIN
     Dosage: UNK
     Route: 065

REACTIONS (15)
  - Miosis [Recovered/Resolved]
  - Hepatic cytolysis [Not Recovered/Not Resolved]
  - Cholestasis [Unknown]
  - Hepatic necrosis [Unknown]
  - Petit mal epilepsy [Unknown]
  - Analgesic drug level increased [Unknown]
  - Hypoxia [Not Recovered/Not Resolved]
  - Confusional state [Not Recovered/Not Resolved]
  - Apnoea [Not Recovered/Not Resolved]
  - Consciousness fluctuating [Not Recovered/Not Resolved]
  - Renal tubular disorder [Unknown]
  - Pulmonary embolism [Unknown]
  - Myocardial ischaemia [Unknown]
  - Circulatory collapse [Unknown]
  - Hypertensive heart disease [Unknown]

NARRATIVE: CASE EVENT DATE: 20210701
